FAERS Safety Report 9572489 (Version 1)
Quarter: 2013Q4

REPORT INFORMATION
  Report Type: Report from Study
  Country: CA (occurrence: CA)
  Receive Date: 20131001
  Receipt Date: 20131001
  Transmission Date: 20140711
  Serious: Yes (Hospitalization)
  Sender: FDA-Public Use
  Company Number: CA-ABBVIE-13P-028-1151868-00

PATIENT
  Sex: Female

DRUGS (2)
  1. HUMIRA [Suspect]
     Indication: CROHN^S DISEASE
     Route: 058
     Dates: start: 20120927, end: 20130919
  2. HUMIRA [Suspect]
     Route: 058
     Dates: start: 20130920

REACTIONS (2)
  - Unevaluable event [Unknown]
  - Drug ineffective [Not Recovered/Not Resolved]
